FAERS Safety Report 4661638-X (Version None)
Quarter: 2005Q2

REPORT INFORMATION
  Report Type: 
  Country: None (occurrence: None)
  Receive Date: 20050502
  Receipt Date: 20050322
  Transmission Date: 20051028
  Serious: Yes (Other)
  Sender: FDA-Public Use
  Company Number: 200510418US

PATIENT
  Age: 41 Year
  Sex: Female
  Weight: 46.3 kg

DRUGS (5)
  1. KETEK [Suspect]
     Indication: BRONCHITIS
     Dosage: TWO 400MG TABLETS MG QD PO
     Route: 048
     Dates: start: 20050113, end: 20050114
  2. KETEK [Suspect]
     Indication: SINUSITIS
     Dosage: TWO 400MG TABLETS MG QD PO
     Route: 048
     Dates: start: 20050113, end: 20050114
  3. GUAIFENESIN [Concomitant]
  4. LORATADINE (CLARITIN) [Concomitant]
  5. PSEUDOEPHEDRINE HYDROCHLORIDE (SUDAFED) [Concomitant]

REACTIONS (1)
  - VISION BLURRED [None]
